FAERS Safety Report 9206768 (Version 1)
Quarter: 2013Q1

REPORT INFORMATION
  Report Type: Spontaneous
  Country: US (occurrence: None)
  Receive Date: 20120731
  Receipt Date: 20120731
  Transmission Date: 20140127
  Serious: No
  Sender: FDA-Public Use
  Company Number: 2012MZ000348

PATIENT
  Sex: 0

DRUGS (1)
  1. XEOMIN [Suspect]
     Indication: BLEPHAROSPASM
     Dosage: 40 U
     Dates: start: 20120530, end: 20120530

REACTIONS (4)
  - Rash [None]
  - Pruritus [None]
  - Eyelid ptosis [None]
  - Vision blurred [None]
